FAERS Safety Report 9456481 (Version 1)
Quarter: 2013Q3

REPORT INFORMATION
  Report Type: Spontaneous
  Country: BE (occurrence: BE)
  Receive Date: 20130813
  Receipt Date: 20130813
  Transmission Date: 20140515
  Serious: Yes (Other)
  Sender: FDA-Public Use
  Company Number: BE-MYLANLABS-2013S1017171

PATIENT
  Age: 46 Year
  Sex: Female

DRUGS (3)
  1. ROCURONIUM BROMIDE [Suspect]
     Indication: INDUCTION OF ANAESTHESIA
     Route: 065
  2. PROPOFOL [Concomitant]
     Indication: INDUCTION OF ANAESTHESIA
     Route: 065
  3. SUFENTANIL [Concomitant]
     Indication: INDUCTION OF ANAESTHESIA
     Route: 065

REACTIONS (3)
  - Drug hypersensitivity [Unknown]
  - Angioedema [Unknown]
  - Dyspnoea [Unknown]
